FAERS Safety Report 4741469-2 (Version None)
Quarter: 2005Q3

REPORT INFORMATION
  Report Type: 
  Country: None (occurrence: None)
  Receive Date: 20050808
  Receipt Date: 20050726
  Transmission Date: 20060218
  Serious: Yes (Death)
  Sender: FDA-Public Use
  Company Number: 430018N05FRA

PATIENT
  Age: 56 Year
  Sex: Male

DRUGS (9)
  1. NOVANTRONE [Suspect]
     Indication: MULTIPLE SCLEROSIS
     Dosage: 20 MG, 1 IN 1 CYCLE, INTRAVENOUS (NOT OTHERWISE SPECIFIED)
     Route: 042
     Dates: start: 20050411, end: 20050411
  2. HEPARIN SODIUM [Concomitant]
  3. BACLOFEN [Concomitant]
  4. FENTANYL     /00174601/ [Concomitant]
  5. TAMSULOSIN HYDROCHLORIDE [Concomitant]
  6. AMITRIPTYLINE HCL [Concomitant]
  7. GABAPENTIN [Concomitant]
  8. POTASSIUM CHLORIDE [Concomitant]
  9. BUFLOMEDIL [Concomitant]

REACTIONS (3)
  - CYANOSIS [None]
  - LUNG DISORDER [None]
  - PULMONARY EMBOLISM [None]
